FAERS Safety Report 9724858 (Version 1)
Quarter: 2013Q4

REPORT INFORMATION
  Report Type: Spontaneous
  Country: US (occurrence: US)
  Receive Date: 20131202
  Receipt Date: 20131202
  Transmission Date: 20140711
  Serious: No
  Sender: FDA-Public Use
  Company Number: US-ENDO PHARMACEUTICALS INC.-OXYC20120020

PATIENT
  Sex: Female

DRUGS (3)
  1. OXYCODONE HCL 30MG [Suspect]
     Indication: BREAKTHROUGH PAIN
     Route: 048
  2. OPANA ER 40MG [Concomitant]
     Indication: ARTHRALGIA
     Dosage: 40 MG
     Route: 048
     Dates: end: 2012
  3. OPANA ER 40MG [Concomitant]
     Indication: BACK PAIN

REACTIONS (1)
  - Therapeutic response decreased [Unknown]
